FAERS Safety Report 25990658 (Version 1)
Quarter: 2025Q4

REPORT INFORMATION
  Report Type: Report from Study
  Country: US (occurrence: US)
  Receive Date: 20251103
  Receipt Date: 20251103
  Transmission Date: 20260118
  Serious: Yes (Other)
  Sender: IPSEN BIOPHARMACEUTICALS, INC.
  Company Number: US-IPSEN Group, Research and Development-2025-21310

PATIENT
  Age: 73 Year
  Sex: Female

DRUGS (2)
  1. BYLVAY [Suspect]
     Active Substance: ODEVIXIBAT
     Indication: Liver disorder
     Route: 048
     Dates: start: 20250312
  2. BYLVAY [Suspect]
     Active Substance: ODEVIXIBAT
     Indication: Pruritus

REACTIONS (1)
  - Hepatic cancer [Not Recovered/Not Resolved]

NARRATIVE: CASE EVENT DATE: 20250829
